FAERS Safety Report 7862945 (Version 4)
Quarter: 2013Q3

REPORT INFORMATION
  Report Type: Report from Study
  Country: BE (occurrence: BE)
  Receive Date: 20110318
  Receipt Date: 20130815
  Transmission Date: 20140515
  Serious: Yes (Hospitalization, Other)
  Sender: FDA-Public Use
  Company Number: BE-ABBOTT-11P-013-0700167-00

PATIENT
  Age: 26 Year
  Sex: Male
  Weight: 83 kg

DRUGS (4)
  1. HUMIRA [Suspect]
     Indication: CROHN^S DISEASE
     Route: 058
     Dates: start: 20090713, end: 20090713
  2. HUMIRA [Suspect]
     Route: 058
     Dates: start: 20090727, end: 20090727
  3. HUMIRA [Suspect]
     Route: 058
  4. VITAMIN D [Concomitant]
     Indication: VITAMIN D DEFICIENCY

REACTIONS (2)
  - Adenoid cystic carcinoma [Recovered/Resolved]
  - Infected cyst [Recovered/Resolved]
